FAERS Safety Report 16691172 (Version 2)
Quarter: 2019Q3

REPORT INFORMATION
  Report Type: Spontaneous
  Country: PT (occurrence: PT)
  Receive Date: 20190812
  Receipt Date: 20190911
  Transmission Date: 20191004
  Serious: Yes (Hospitalization)
  Sender: FDA-Public Use
  Company Number: PT-SA-2019SA214090

PATIENT
  Age: 77 Year
  Sex: Male

DRUGS (3)
  1. INDAPAMIDE. [Suspect]
     Active Substance: INDAPAMIDE
     Dosage: UNK UNK, UNK
  2. METFORMIN HYDROCHLORIDE. [Suspect]
     Active Substance: METFORMIN HYDROCHLORIDE
     Dosage: UNK, UNK
  3. AMLODIPINE BESILATE/TELMISARTAN [Suspect]
     Active Substance: AMLODIPINE\TELMISARTAN
     Indication: HYPERTENSION
     Dosage: UNK UNK, UNK

REACTIONS (6)
  - Asthenia [Unknown]
  - Drug ineffective [Unknown]
  - Tubulointerstitial nephritis [Unknown]
  - Blood pressure increased [Unknown]
  - Acute kidney injury [Recovering/Resolving]
  - Paraesthesia [Unknown]
